FAERS Safety Report 5661605-3 (Version None)
Quarter: 2008Q1

REPORT INFORMATION
  Report Type: 
  Country: None (occurrence: None)
  Receive Date: 20080312
  Receipt Date: 20080306
  Transmission Date: 20080703
  Serious: Yes (Death, Other)
  Sender: FDA-Public Use
  Company Number: US-BRISTOL-MYERS SQUIBB COMPANY-14104095

PATIENT
  Sex: Female

DRUGS (2)
  1. COUMADIN [Suspect]
  2. AVELOX [Suspect]
     Dosage: 400MG TABLETS
     Route: 048

REACTIONS (3)
  - DEATH [None]
  - FALL [None]
  - HAEMATOMA [None]
